FAERS Safety Report 5758754-8 (Version None)
Quarter: 2008Q2

REPORT INFORMATION
  Report Type: 
  Country: None (occurrence: None)
  Receive Date: 20080603
  Receipt Date: 20080603
  Transmission Date: 20081010
  Serious: Yes (Hospitalization)
  Sender: FDA-Public Use
  Company Number: None

PATIENT
  Age: 61 Year
  Sex: Male

DRUGS (1)
  1. VANCOMYCIN [Suspect]
     Indication: OSTEOMYELITIS
     Dosage: 1500 MG BID IV
     Route: 042
     Dates: start: 20070324, end: 20070525

REACTIONS (3)
  - LEUKOPENIA [None]
  - NEUTROPENIA [None]
  - RENAL FAILURE ACUTE [None]
